FAERS Safety Report 24910273 (Version 1)
Quarter: 2025Q1

REPORT INFORMATION
  Report Type: Spontaneous
  Country: CN (occurrence: CN)
  Receive Date: 20250131
  Receipt Date: 20250131
  Transmission Date: 20250409
  Serious: Yes (Life-Threatening, Hospitalization, Other)
  Sender: BAYER HEALTHCARE PHARMACEUTICALS INC.
  Company Number: CN-BAYER-2025A010021

PATIENT
  Age: 48 Year
  Sex: Female
  Weight: 59.8 kg

DRUGS (2)
  1. MIRENA [Suspect]
     Active Substance: LEVONORGESTREL
     Indication: Heavy menstrual bleeding
     Dosage: 20?G/DAY
     Route: 015
     Dates: start: 20230830, end: 20250120
  2. MIRENA [Suspect]
     Active Substance: LEVONORGESTREL
     Indication: Uterine polyp

REACTIONS (6)
  - Embedded device [Recovered/Resolved]
  - Polymenorrhoea [Recovering/Resolving]
  - Uterine leiomyoma [None]
  - Blood pressure increased [None]
  - Uterine cyst [None]
  - Respiratory rate increased [None]

NARRATIVE: CASE EVENT DATE: 20241201
